FAERS Safety Report 25745899 (Version 1)
Quarter: 2025Q3

REPORT INFORMATION
  Report Type: Spontaneous
  Country: US (occurrence: US)
  Receive Date: 20250901
  Receipt Date: 20250901
  Transmission Date: 20251020
  Serious: Yes (Disabling, Other)
  Sender: ROCHE
  Company Number: US-ROCHE-10000372509

PATIENT
  Sex: Female

DRUGS (1)
  1. OCREVUS [Suspect]
     Active Substance: OCRELIZUMAB
     Indication: Product used for unknown indication
     Route: 065

REACTIONS (3)
  - Progressive multiple sclerosis [Unknown]
  - Multiple sclerosis [Unknown]
  - Underweight [Unknown]
